FAERS Safety Report 17166999 (Version 3)
Quarter: 2020Q1

REPORT INFORMATION
  Report Type: Spontaneous
  Country: US (occurrence: US)
  Receive Date: 20191217
  Receipt Date: 20200124
  Transmission Date: 20200409
  Serious: Yes (Death, Hospitalization, Other)
  Sender: FDA-Public Use
  Company Number: NVSC2019US066007

PATIENT
  Age: 59 Year
  Sex: Male
  Weight: 84.4 kg

DRUGS (6)
  1. KYMRIAH [Suspect]
     Active Substance: TISAGENLECLEUCEL
     Indication: DIFFUSE LARGE B-CELL LYMPHOMA
     Dosage: 1.70X10E8 VIABLE CAR-T CELLS
     Route: 065
  2. METRONIDAZOLE. [Concomitant]
     Active Substance: METRONIDAZOLE
     Indication: FEBRILE NEUTROPENIA
     Dosage: 500 MG, TID
     Route: 048
     Dates: start: 20191121, end: 20191210
  3. PIPERACILLIN. [Concomitant]
     Active Substance: PIPERACILLIN SODIUM
     Indication: FEBRILE NEUTROPENIA
     Dosage: 4.5 G, Q6H
     Route: 042
     Dates: start: 20191210
  4. CEFEPIME [Concomitant]
     Active Substance: CEFEPIME HYDROCHLORIDE
     Indication: FEBRILE NEUTROPENIA
     Dosage: 1 G, Q8H
     Route: 042
  5. ACYCLOVIR. [Concomitant]
     Active Substance: ACYCLOVIR
     Indication: PROPHYLAXIS
     Dosage: 400 MG, BID
     Route: 048
  6. MICAFUNGIN. [Concomitant]
     Active Substance: MICAFUNGIN SODIUM
     Indication: FEBRILE NEUTROPENIA
     Dosage: 100 MG, Q24H
     Route: 042
     Dates: start: 20191210

REACTIONS (15)
  - Diffuse large B-cell lymphoma [Fatal]
  - Hepatic lesion [Unknown]
  - Lactic acidosis [Fatal]
  - Neurotoxicity [Recovered/Resolved]
  - Blood lactate dehydrogenase increased [Fatal]
  - Malignant neoplasm progression [Fatal]
  - Hypernatraemia [Unknown]
  - Tachypnoea [Fatal]
  - Cytokine release syndrome [Recovered/Resolved]
  - Metastases to liver [Fatal]
  - Blood lactic acid increased [Unknown]
  - Ascites [Fatal]
  - Nodule [Unknown]
  - Abdominal mass [Fatal]
  - Gastrointestinal haemorrhage [Not Recovered/Not Resolved]

NARRATIVE: CASE EVENT DATE: 20191120
